FAERS Safety Report 9136339 (Version 1)
Quarter: 2013Q1

REPORT INFORMATION
  Report Type: Spontaneous
  Country: US (occurrence: US)
  Receive Date: 20130219
  Receipt Date: 20130219
  Transmission Date: 20140127
  Serious: No
  Sender: FDA-Public Use
  Company Number: US-BRISTOL-MYERS SQUIBB COMPANY-16518722

PATIENT
  Sex: Female
  Weight: 99 kg

DRUGS (1)
  1. ORENCIA [Suspect]
     Indication: RHEUMATOID ARTHRITIS
     Dosage: 1ST INFUSION: NOV/DEC11,LAST INF: 21/29MAR12
     Route: 042

REACTIONS (5)
  - Hepatomegaly [Unknown]
  - Headache [Unknown]
  - Dizziness [Unknown]
  - Skin discolouration [Unknown]
  - Chest pain [Unknown]
